FAERS Safety Report 16409819 (Version 1)
Quarter: 2019Q2

REPORT INFORMATION
  Report Type: Spontaneous
  Country: US (occurrence: US)
  Receive Date: 20190610
  Receipt Date: 20190610
  Transmission Date: 20190711
  Serious: No
  Sender: FDA-Public Use
  Company Number: US-PFIZER INC-2019241489

PATIENT
  Age: 72 Year
  Sex: Female
  Weight: 61.23 kg

DRUGS (10)
  1. ZOLOFT [Concomitant]
     Active Substance: SERTRALINE HYDROCHLORIDE
     Indication: ANXIETY
     Dosage: 50 MG, DAILY
     Route: 048
  2. TOUJEO [Concomitant]
     Active Substance: INSULIN GLARGINE
     Indication: DIABETES MELLITUS
     Dosage: 18 IU, A DAY BY INJECTION
  3. METFORMIN HCL [Concomitant]
     Active Substance: METFORMIN HYDROCHLORIDE
     Indication: DIABETES MELLITUS
     Dosage: 500MG, TWO TABLETS DAILY
     Route: 048
  4. WARFARIN SODIUM. [Concomitant]
     Active Substance: WARFARIN SODIUM
     Indication: BLOOD COUNT ABNORMAL
     Dosage: 5 MG, UNK (THOUGH THIS VARIES IF BLOOD COUNT IS HIGH ADJUST, IF LOW ADJUST)
  5. LIPITOR [Concomitant]
     Active Substance: ATORVASTATIN CALCIUM
     Dosage: 10MG, ONE HALF TAB DAILY
     Route: 048
  6. LYRICA [Suspect]
     Active Substance: PREGABALIN
     Indication: FIBROMYALGIA
     Dosage: 50 MG, ONCE A DAY
     Route: 048
     Dates: start: 2017
  7. LOTRIL [CLOTRIMAZOLE] [Concomitant]
     Indication: ANXIETY
     Dosage: 5-20 MG, 1 CAPSULE DAILY
     Route: 048
  8. LYRICA [Suspect]
     Active Substance: PREGABALIN
     Indication: RHEUMATOID ARTHRITIS
     Dosage: 75 MG, UNK
     Route: 048
  9. LEFLUNOMIDE. [Concomitant]
     Active Substance: LEFLUNOMIDE
     Indication: RHEUMATOID ARTHRITIS
     Dosage: 10 MG, TWICE A WEEK (ON TUESDAY AND SATURDAY)
  10. INVOKANA [Concomitant]
     Active Substance: CANAGLIFLOZIN
     Indication: ARTHRITIS
     Dosage: 100 MG, ONCE DAILY
     Route: 048

REACTIONS (5)
  - Dizziness [Unknown]
  - Blood glucose increased [Unknown]
  - Somnolence [Unknown]
  - Feeling abnormal [Unknown]
  - Memory impairment [Unknown]
